FAERS Safety Report 8612404 (Version 33)
Quarter: 2016Q3

REPORT INFORMATION
  Report Type: Spontaneous
  Country: CA (occurrence: CA)
  Receive Date: 20120613
  Receipt Date: 20160823
  Transmission Date: 20161109
  Serious: Yes (Other)
  Sender: FDA-Public Use
  Company Number: CA-ROCHE-1025145

PATIENT
  Age: 36 Year
  Sex: Female

DRUGS (12)
  1. XOLAIR [Suspect]
     Active Substance: OMALIZUMAB
     Route: 058
     Dates: start: 20111026
  2. XOLAIR [Suspect]
     Active Substance: OMALIZUMAB
     Route: 058
     Dates: start: 20160816
  3. XOLAIR [Suspect]
     Active Substance: OMALIZUMAB
     Route: 058
     Dates: start: 20141208
  4. XOLAIR [Suspect]
     Active Substance: OMALIZUMAB
     Route: 058
     Dates: start: 20150615
  5. XOLAIR [Suspect]
     Active Substance: OMALIZUMAB
     Indication: ASTHMA
     Route: 058
     Dates: start: 20100816
  6. XOLAIR [Suspect]
     Active Substance: OMALIZUMAB
     Route: 058
     Dates: start: 20130702
  7. XOLAIR [Suspect]
     Active Substance: OMALIZUMAB
     Route: 058
     Dates: start: 20160412
  8. ADVAIR HFA [Concomitant]
     Active Substance: FLUTICASONE PROPIONATE\SALMETEROL XINAFOATE
     Indication: PRODUCT USED FOR UNKNOWN INDICATION
     Route: 065
  9. CORTISONE [Concomitant]
     Active Substance: CORTISONE\HYDROCORTISONE
     Indication: SPINAL OSTEOARTHRITIS
  10. XOLAIR [Suspect]
     Active Substance: OMALIZUMAB
     Route: 058
     Dates: start: 20160315
  11. XOLAIR [Suspect]
     Active Substance: OMALIZUMAB
     Route: 058
     Dates: start: 20160329
  12. PREDNISONE. [Concomitant]
     Active Substance: PREDNISONE
     Indication: PRODUCT USED FOR UNKNOWN INDICATION
     Route: 065

REACTIONS (33)
  - Precancerous cells present [Unknown]
  - Weight decreased [Unknown]
  - Dyspnoea [Unknown]
  - Nasopharyngitis [Unknown]
  - Influenza like illness [Unknown]
  - Body temperature decreased [Unknown]
  - Sinusitis [Unknown]
  - Dizziness [Unknown]
  - Cough [Not Recovered/Not Resolved]
  - Cervix carcinoma [Unknown]
  - Arthralgia [Unknown]
  - Limb discomfort [Unknown]
  - Stress [Unknown]
  - Spinal osteoarthritis [Unknown]
  - Toothache [Unknown]
  - Fatigue [Unknown]
  - Neck deformity [Unknown]
  - Oropharyngeal pain [Unknown]
  - Gait disturbance [Unknown]
  - Nausea [Unknown]
  - Rash [Unknown]
  - Pain of skin [Unknown]
  - Hypersensitivity [Recovered/Resolved]
  - Spinal cord injury [Unknown]
  - Spinal cord compression [Unknown]
  - Hypotension [Not Recovered/Not Resolved]
  - Respiratory tract congestion [Unknown]
  - Influenza [Unknown]
  - Ear pain [Unknown]
  - Hypoaesthesia [Unknown]
  - Headache [Unknown]
  - Pulmonary congestion [Unknown]
  - Tooth disorder [Unknown]

NARRATIVE: CASE EVENT DATE: 201110
